FAERS Safety Report 8536474-4 (Version None)
Quarter: 2012Q3

REPORT INFORMATION
  Report Type: 
  Country: None (occurrence: None)
  Receive Date: 20120725
  Receipt Date: 20120717
  Transmission Date: 20120928
  Serious: Yes (Other)
  Sender: FDA-Public Use
  Company Number: GB-ROCHE-1090269

PATIENT
  Sex: Male

DRUGS (3)
  1. ZELBORAF [Suspect]
     Indication: PRODUCT USED FOR UNKNOWN INDICATION
  2. CANDESARTAN [Concomitant]
     Indication: HYPERTENSION
     Dosage: LONG TERM
     Route: 048
  3. FUROSEMIDE [Concomitant]
     Indication: JOINT SWELLING
     Dosage: LONG TERM
     Route: 048

REACTIONS (1)
  - HYPERTHYROIDISM [None]
